FAERS Safety Report 6299314-2 (Version None)
Quarter: 2009Q3

REPORT INFORMATION
  Report Type: 
  Country: None (occurrence: None)
  Receive Date: 20090806
  Receipt Date: 20090730
  Transmission Date: 20100115
  Serious: No
  Sender: FDA-Public Use
  Company Number: US-B.I. PHARMACEUTICALS,INC./RIDGEFIELD-2009-BP-09118BP

PATIENT
  Sex: Female

DRUGS (9)
  1. ZANTAC 75 [Suspect]
     Indication: DYSPEPSIA
     Dosage: 75 MG
     Route: 048
     Dates: start: 20090201
  2. PRILOSEC [Concomitant]
     Indication: GASTROINTESTINAL DISORDER
     Dosage: 40 MG
     Route: 048
  3. CHEMOTHERAPY [Concomitant]
     Indication: NEOPLASM MALIGNANT
     Route: 048
  4. ATIVAN [Concomitant]
     Indication: PREMEDICATION
     Route: 048
  5. COMPAZINE [Concomitant]
     Indication: PREMEDICATION
     Route: 048
  6. GABAPENTIN [Concomitant]
     Indication: PAIN
     Route: 048
  7. SENNALAX [Concomitant]
     Indication: INTESTINAL FUNCTIONAL DISORDER
     Route: 048
  8. CALCIUM [Concomitant]
     Indication: VITAMIN SUPPLEMENTATION
     Route: 048
  9. LUTEIN [Concomitant]
     Indication: EYE DISORDER
     Route: 048

REACTIONS (1)
  - NAUSEA [None]
